FAERS Safety Report 6716504-2 (Version None)
Quarter: 2010Q2

REPORT INFORMATION
  Report Type: 
  Country: None (occurrence: None)
  Receive Date: 20100507
  Receipt Date: 20100426
  Transmission Date: 20101027
  Serious: Yes (Hospitalization, Other)
  Sender: FDA-Public Use
  Company Number: US-ELI_LILLY_AND_COMPANY-US201003008647

PATIENT
  Sex: Female

DRUGS (15)
  1. FORTEO [Suspect]
     Indication: OSTEOPOROSIS
     Dosage: 20 UG, DAILY (1/D)
     Dates: start: 20100101, end: 20100301
  2. FORTEO [Suspect]
     Dosage: 20 UG, DAILY (1/D)
     Dates: start: 20100101
  3. COREG [Concomitant]
  4. ENALAPRIL MALEATE [Concomitant]
  5. LASIX [Concomitant]
  6. COUMADIN [Concomitant]
  7. VICODIN [Concomitant]
  8. ACTONEL [Concomitant]
  9. AMIDARONE [Concomitant]
  10. VITAMIN D [Concomitant]
  11. CRESTOR [Concomitant]
  12. FLEXERIL [Concomitant]
  13. PRILOSEC [Concomitant]
  14. SINGULAIR [Concomitant]
  15. TRICOR [Concomitant]

REACTIONS (4)
  - MOVEMENT DISORDER [None]
  - PAIN IN EXTREMITY [None]
  - SPEECH DISORDER [None]
  - TRANSIENT ISCHAEMIC ATTACK [None]
